FAERS Safety Report 11671792 (Version 1)
Quarter: 2015Q4

REPORT INFORMATION
  Report Type: Report from Study
  Country: US (occurrence: US)
  Receive Date: 20151028
  Receipt Date: 20151028
  Transmission Date: 20160304
  Serious: Yes (Other)
  Sender: FDA-Public Use
  Company Number: PHEH2014US018828

PATIENT
  Age: 75 Year
  Sex: Female

DRUGS (1)
  1. MYFORTIC [Suspect]
     Active Substance: MYCOPHENOLATE SODIUM
     Indication: PULMONARY FIBROSIS
     Dosage: 360 MG, ONCE DAILY
     Route: 048

REACTIONS (4)
  - Oxygen saturation decreased [Recovering/Resolving]
  - Haemophilus infection [Recovered/Resolved]
  - Dyspnoea [Unknown]
  - Bronchitis [Recovered/Resolved]

NARRATIVE: CASE EVENT DATE: 20140930
